FAERS Safety Report 10224057 (Version 3)
Quarter: 2014Q3

REPORT INFORMATION
  Report Type: Spontaneous
  Country: US (occurrence: US)
  Receive Date: 20140609
  Receipt Date: 20140822
  Transmission Date: 20150326
  Serious: Yes (Death, Hospitalization, Other)
  Sender: FDA-Public Use
  Company Number: US-AMGEN-USASP2014041339

PATIENT
  Age: 69 Year
  Sex: Female
  Weight: 50.79 kg

DRUGS (6)
  1. FUROSEMIDE                         /00032602/ [Concomitant]
     Active Substance: FUROSEMIDE
     Dosage: 60 MG, QD
     Route: 048
  2. LABETALOL [Concomitant]
     Active Substance: LABETALOL\LABETALOL HYDROCHLORIDE
     Dosage: 200 MG, BID
     Route: 048
  3. RITUXAN [Concomitant]
     Active Substance: RITUXIMAB
     Dosage: UNK
     Dates: start: 201009
  4. PROLIA [Suspect]
     Active Substance: DENOSUMAB
     Indication: OSTEOPOROSIS POSTMENOPAUSAL
     Dosage: 60 MG, Q6MO
     Route: 058
     Dates: start: 20130528, end: 20140523
  5. TRILEPTAL [Concomitant]
     Active Substance: OXCARBAZEPINE
     Indication: CONVULSION
     Dosage: 600 MG, BID
     Route: 048
  6. OMEPRAZOLE                         /00661202/ [Concomitant]
     Dosage: 40 MG, UNK

REACTIONS (5)
  - Colon cancer metastatic [Fatal]
  - Metastases to liver [Unknown]
  - Colon cancer recurrent [Fatal]
  - Staphylococcal infection [Unknown]
  - Hepatic failure [Unknown]
